FAERS Safety Report 4338837-X (Version None)
Quarter: 2004Q2

REPORT INFORMATION
  Report Type: 
  Country: None (occurrence: None)
  Receive Date: 20040414
  Receipt Date: 20040407
  Transmission Date: 20050107
  Serious: Yes (Other)
  Sender: FDA-Public Use
  Company Number: US-MERCK-0404USA00943

PATIENT
  Age: 5 Year
  Sex: Male

DRUGS (1)
  1. DECADRON [Suspect]
     Indication: BLINDNESS
     Route: 048

REACTIONS (4)
  - ABDOMINAL DISTENSION [None]
  - EPSTEIN-BARR VIRUS INFECTION [None]
  - HEPATOSPLENOMEGALY [None]
  - LEUKAEMOID REACTION [None]
